FAERS Safety Report 19250205 (Version 1)
Quarter: 2021Q2

REPORT INFORMATION
  Report Type: Report from Study
  Country: AU (occurrence: AU)
  Receive Date: 20210513
  Receipt Date: 20210513
  Transmission Date: 20210717
  Serious: Yes (Other)
  Sender: FDA-Public Use
  Company Number: AU-REGENERON PHARMACEUTICALS, INC.-2020-69714

PATIENT

DRUGS (2)
  1. EYLEA [Suspect]
     Active Substance: AFLIBERCEPT
     Indication: NEOVASCULAR AGE-RELATED MACULAR DEGENERATION
     Dosage: 1 DF, Q4WK, IN BOTH EYES
     Route: 031
     Dates: start: 2017
  2. EYLEA [Suspect]
     Active Substance: AFLIBERCEPT
     Dosage: 1 DF, ONCE, LAST INJECTION IN BOTH EYES PRIOR TO REPORT
     Route: 031
     Dates: start: 20200805, end: 20200805

REACTIONS (12)
  - Skin cancer [Unknown]
  - Skin fissures [Not Recovered/Not Resolved]
  - Localised infection [Not Recovered/Not Resolved]
  - Off label use [Unknown]
  - Blindness transient [Unknown]
  - Chillblains [Not Recovered/Not Resolved]
  - Dermatitis infected [Unknown]
  - Intraocular pressure increased [Unknown]
  - Rash macular [Not Recovered/Not Resolved]
  - Weight increased [Unknown]
  - Vitamin D decreased [Not Recovered/Not Resolved]
  - Inappropriate schedule of product administration [Unknown]

NARRATIVE: CASE EVENT DATE: 202010
